FAERS Safety Report 5049427-8 (Version None)
Quarter: 2006Q2

REPORT INFORMATION
  Report Type: 
  Country: None (occurrence: None)
  Receive Date: 20060613
  Receipt Date: 20060518
  Transmission Date: 20061013
  Serious: No
  Sender: FDA-Public Use
  Company Number: 2005-00587

PATIENT
  Age: 54 Year
  Sex: Female

DRUGS (15)
  1. VELCADE [Suspect]
     Indication: AMYLOIDOSIS
     Dosage: SEE IMAGE
     Route: 040
     Dates: start: 20050110, end: 20050207
  2. VELCADE [Suspect]
     Indication: AMYLOIDOSIS
     Dosage: SEE IMAGE
     Route: 040
     Dates: start: 20050224, end: 20050303
  3. POTASSIUM CHLORIDE [Concomitant]
  4. LASIX [Concomitant]
  5. ZAROXOLYN [Concomitant]
  6. LEVOXYL [Concomitant]
  7. TOPROL-XL [Concomitant]
  8. ADVAIR DISKUS 100/50 [Concomitant]
  9. TEMAZEPAM [Concomitant]
  10. MIRAPEX [Concomitant]
  11. GLIMEPIRIDE [Concomitant]
  12. PROTONIX [Concomitant]
  13. DECADRON [Concomitant]
  14. ANZEMET [Concomitant]
  15. LEVAQUIN [Concomitant]

REACTIONS (8)
  - ABDOMINAL DISTENSION [None]
  - DIFFICULTY IN WALKING [None]
  - DYSPHONIA [None]
  - FATIGUE [None]
  - NEUROPATHY PERIPHERAL [None]
  - OEDEMA PERIPHERAL [None]
  - PALMAR-PLANTAR ERYTHRODYSAESTHESIA SYNDROME [None]
  - THROMBOCYTOPENIA [None]
